FAERS Safety Report 4845322-5 (Version None)
Quarter: 2005Q4

REPORT INFORMATION
  Report Type: 
  Country: None (occurrence: None)
  Receive Date: 20051205
  Receipt Date: 20051122
  Transmission Date: 20060501
  Serious: Yes (Hospitalization)
  Sender: FDA-Public Use
  Company Number: FR-GLAXOSMITHKLINE-B0401734A

PATIENT
  Age: 67 Year
  Sex: Female

DRUGS (5)
  1. LAMICTAL [Suspect]
     Indication: EPILEPSY
     Dosage: 25MG PER DAY
     Route: 048
     Dates: start: 20020206
  2. LEVOTHYROX [Suspect]
     Indication: HYPOTHYROIDISM
     Dosage: 25MCG PER DAY
     Route: 048
     Dates: start: 20041201
  3. DEPAKENE [Suspect]
     Indication: EPILEPSY
     Dosage: 500MG TWICE PER DAY
     Route: 048
     Dates: start: 19991223
  4. DIHYDAN [Suspect]
     Indication: EPILEPSY
     Dosage: 100MG THREE TIMES PER DAY
     Route: 048
     Dates: start: 20030602
  5. URBANYL [Concomitant]
     Route: 048

REACTIONS (3)
  - CONVULSION [None]
  - HYPOCHLORAEMIA [None]
  - HYPONATRAEMIA [None]
